FAERS Safety Report 6097573-2 (Version None)
Quarter: 2009Q1

REPORT INFORMATION
  Report Type: 
  Country: None (occurrence: None)
  Receive Date: 20090227
  Receipt Date: 20081124
  Transmission Date: 20090719
  Serious: No
  Sender: FDA-Public Use
  Company Number: A0757884A

PATIENT
  Age: 58 Year
  Sex: Female

DRUGS (4)
  1. IMITREX [Suspect]
     Indication: MIGRAINE
     Dosage: 6MG AS REQUIRED
     Route: 058
     Dates: start: 19930101
  2. BUSPAR [Concomitant]
  3. WELLBUTRIN [Concomitant]
  4. DICLOFENAC [Concomitant]

REACTIONS (1)
  - DRUG INEFFECTIVE [None]
